FAERS Safety Report 4973774-9 (Version None)
Quarter: 2006Q2

REPORT INFORMATION
  Report Type: 
  Country: None (occurrence: None)
  Receive Date: 20060414
  Receipt Date: 20060405
  Transmission Date: 20061013
  Serious: Yes (Disabling)
  Sender: FDA-Public Use
  Company Number: MX-MERCK-0604MEX00007

PATIENT
  Age: 81 Year
  Sex: Female
  Weight: 57 kg

DRUGS (4)
  1. FOSAMAX [Suspect]
     Indication: OSTEOPOROSIS
     Route: 048
     Dates: start: 20050101, end: 20050101
  2. FLUOXETINE HYDROCHLORIDE [Concomitant]
     Indication: VERTIGO
     Route: 048
     Dates: start: 20010101
  3. PIRACETAM [Concomitant]
     Indication: CARDIOVASCULAR DISORDER
     Route: 048
     Dates: start: 20010101
  4. CLONAZEPAM [Concomitant]
     Indication: HEADACHE
     Route: 048
     Dates: start: 20020101

REACTIONS (2)
  - ASTHENIA [None]
  - MUSCLE RIGIDITY [None]
